FAERS Safety Report 18307232 (Version 1)
Quarter: 2020Q3

REPORT INFORMATION
  Report Type: Spontaneous
  Country: IT (occurrence: IT)
  Receive Date: 20200924
  Receipt Date: 20200924
  Transmission Date: 20201103
  Serious: Yes (Hospitalization)
  Sender: FDA-Public Use
  Company Number: IT-TEVA-2020-IT-1830118

PATIENT
  Age: 61 Year
  Sex: Female

DRUGS (4)
  1. DEPAKIN CHRONO 500 MG COMPRESSE A RILASCIO PROLUNGATO [Suspect]
     Active Substance: VALPROIC ACID
     Indication: INTENTIONAL OVERDOSE
     Dosage: 12 DOSAGE FORMS
     Route: 048
     Dates: start: 20200822, end: 20200822
  2. PANTOPRAZOLE [Suspect]
     Active Substance: PANTOPRAZOLE
     Indication: INTENTIONAL OVERDOSE
     Dosage: 160 MG
     Route: 048
     Dates: start: 20200822, end: 20200822
  3. RIVOTRIL [Suspect]
     Active Substance: CLONAZEPAM
     Indication: INTENTIONAL OVERDOSE
     Dosage: 8 MG
     Route: 048
     Dates: start: 20200822, end: 20200822
  4. CLOZAPINE. [Suspect]
     Active Substance: CLOZAPINE
     Indication: INTENTIONAL OVERDOSE
     Dosage: 400 MG
     Route: 048
     Dates: start: 20200822, end: 20200822

REACTIONS (3)
  - Depressed level of consciousness [Not Recovered/Not Resolved]
  - Intentional overdose [Not Recovered/Not Resolved]
  - Confusional state [Not Recovered/Not Resolved]

NARRATIVE: CASE EVENT DATE: 20200822
